FAERS Safety Report 15949817 (Version 1)
Quarter: 2019Q1

REPORT INFORMATION
  Report Type: Spontaneous
  Country: TR (occurrence: TR)
  Receive Date: 20190211
  Receipt Date: 20190211
  Transmission Date: 20190417
  Serious: Yes (Life-Threatening, Hospitalization, Other)
  Sender: FDA-Public Use
  Company Number: TR-ACP NIMBLE BUYER INC-GW2019TR000006

PATIENT

DRUGS (3)
  1. METRONIDAZOLE. [Suspect]
     Active Substance: METRONIDAZOLE
     Indication: FUNGAL ABSCESS CENTRAL NERVOUS SYSTEM
     Dosage: 400 ML, QD
     Route: 042
  2. METRONIDAZOLE. [Suspect]
     Active Substance: METRONIDAZOLE
     Dosage: 300 ML, QD
     Route: 042
  3. METRONIDAZOLE. [Suspect]
     Active Substance: METRONIDAZOLE
     Dosage: 1.5 G, QD
     Route: 048

REACTIONS (2)
  - Nuclear magnetic resonance imaging abnormal [Recovering/Resolving]
  - Neurotoxicity [Recovering/Resolving]
